FAERS Safety Report 8275872-3 (Version None)
Quarter: 2012Q2

REPORT INFORMATION
  Report Type: 
  Country: None (occurrence: None)
  Receive Date: 20120412
  Receipt Date: 20120409
  Transmission Date: 20120825
  Serious: Yes (Other)
  Sender: FDA-Public Use
  Company Number: US-BAYER-201010388NA

PATIENT
  Age: 30 Year
  Sex: Female
  Weight: 61.364 kg

DRUGS (3)
  1. LOVENOX [Concomitant]
     Dosage: TWICE A DAY FOR TWO MONTHS AND ONE SHOT A DAY THEREAFTER FOR SEVEN MONTHS.
     Dates: start: 20071201
  2. VICODIN [Concomitant]
  3. YAZ [Suspect]
     Indication: CONTRACEPTION
     Route: 048
     Dates: start: 20061201, end: 20071220

REACTIONS (2)
  - PAIN IN EXTREMITY [None]
  - DEEP VEIN THROMBOSIS [None]
